FAERS Safety Report 6548167-3 (Version None)
Quarter: 2010Q1

REPORT INFORMATION
  Report Type: 
  Country: None (occurrence: None)
  Receive Date: 20100124
  Receipt Date: 20090128
  Transmission Date: 20100710
  Serious: No
  Sender: FDA-Public Use
  Company Number: US-ALLERGAN-0901023US

PATIENT
  Age: 51 Year
  Sex: Female

DRUGS (10)
  1. RESTASIS [Suspect]
     Indication: DRY EYE
     Route: 047
     Dates: start: 20081211
  2. INSULIN [Concomitant]
  3. PREDNISOLONE [Concomitant]
     Dosage: 5 MG, QD
  4. ZOLOFT [Concomitant]
     Dosage: 100 MG, QD
  5. DELTASONE [Concomitant]
     Dosage: 240 MG, QD
  6. PLAVIX [Concomitant]
     Dosage: 75 MG, QD
  7. LIPITOR [Concomitant]
     Dosage: 20 MG, QD
  8. CELLCEPT [Concomitant]
     Dosage: 500 MG, BID
  9. PROGRAFT [Concomitant]
     Dosage: 1 MG, BID
  10. LEVOBUNOLOL HCL [Concomitant]
     Dosage: UNK, QD

REACTIONS (2)
  - HEADACHE [None]
  - NECK PAIN [None]
